FAERS Safety Report 17696899 (Version 4)
Quarter: 2020Q3

REPORT INFORMATION
  Report Type: Spontaneous
  Country: DE (occurrence: DE)
  Receive Date: 20200423
  Receipt Date: 20200703
  Transmission Date: 20201102
  Serious: Yes (Hospitalization, Other)
  Sender: FDA-Public Use
  Company Number: DE-ACTELION-A-CH2020-204285

PATIENT
  Age: 70 Year
  Sex: Male

DRUGS (18)
  1. SIMVASTATIN. [Concomitant]
     Active Substance: SIMVASTATIN
     Dosage: 40 MG, OD
  2. COLCHICIN [Concomitant]
     Active Substance: COLCHICINE
     Dosage: 0.5 MG, OD
  3. FENTANYL. [Concomitant]
     Active Substance: FENTANYL
     Dosage: 25 MCG/H (CHANGE EVERY 3 DAYS)
     Route: 003
  4. UPTRAVI [Suspect]
     Active Substance: SELEXIPAG
     Indication: PULMONARY ARTERIAL HYPERTENSION
     Dosage: UNK
     Route: 048
     Dates: start: 20200303, end: 20200325
  5. SILDENAFIL. [Concomitant]
     Active Substance: SILDENAFIL
     Dosage: UNK
  6. ASPIRIN. [Concomitant]
     Active Substance: ASPIRIN
     Dosage: 100 MG, OD
  7. TOREM [TORASEMIDE] [Concomitant]
     Active Substance: TORSEMIDE
     Dosage: 40 MG, BID
  8. METAMIZOLE [Concomitant]
     Active Substance: METAMIZOLE
     Dosage: 500 MG, TID
  9. FENTANYL. [Concomitant]
     Active Substance: FENTANYL
     Dosage: UNK
  10. SULBUTAMOL [Concomitant]
     Dosage: 6 DF, QD
  11. OPSUMIT [Suspect]
     Active Substance: MACITENTAN
     Indication: PULMONARY ARTERIAL HYPERTENSION
     Dosage: 10 MG, OD
     Route: 048
     Dates: start: 2016, end: 20200422
  12. SPIRIVA [Concomitant]
     Active Substance: TIOTROPIUM BROMIDE MONOHYDRATE
     Dosage: 5 MCG, OD
  13. FORMOTEROL [Concomitant]
     Active Substance: FORMOTEROL
     Dosage: 12 MCG, BID
  14. DIGOXIN. [Concomitant]
     Active Substance: DIGOXIN
     Dosage: 0.07 MG, OD
  15. XIPAMID [Concomitant]
     Active Substance: XIPAMIDE
     Dosage: 20 MG (1/2) (MONDAY, WEDNESDAY, FRIDAY)
  16. SILDENAFIL. [Concomitant]
     Active Substance: SILDENAFIL
     Dosage: 20 MG, TID
  17. FEBUXOSTAT. [Concomitant]
     Active Substance: FEBUXOSTAT
     Dosage: 80 MG, OD
  18. METOPROLOL. [Concomitant]
     Active Substance: METOPROLOL
     Dosage: 47.5 MG, OD

REACTIONS (10)
  - Thoracic cavity drainage [Unknown]
  - Right ventricular failure [Unknown]
  - Lung adenocarcinoma [Not Recovered/Not Resolved]
  - Hypercapnia [Unknown]
  - Productive cough [Unknown]
  - Pleural effusion [Unknown]
  - Respiratory failure [Unknown]
  - Dyspnoea [Unknown]
  - Cough [Not Recovered/Not Resolved]
  - BRAF V600E mutation positive [Not Recovered/Not Resolved]

NARRATIVE: CASE EVENT DATE: 20200210
